FAERS Safety Report 7528197-5 (Version None)
Quarter: 2011Q2

REPORT INFORMATION
  Report Type: 
  Country: None (occurrence: None)
  Receive Date: 20110607
  Receipt Date: 20110107
  Transmission Date: 20111010
  Serious: No
  Sender: FDA-Public Use
  Company Number: US-ASTRAZENECA-2010SE61069

PATIENT
  Age: 46 Year
  Sex: Female

DRUGS (3)
  1. NEXIUM [Concomitant]
  2. PRILOSEC [Suspect]
     Route: 048
  3. PRILOSEC OTC [Suspect]
     Route: 048

REACTIONS (7)
  - DEPRESSION [None]
  - HEADACHE [None]
  - NAUSEA [None]
  - AGITATION [None]
  - NERVOUSNESS [None]
  - MALAISE [None]
  - CRYING [None]
